FAERS Safety Report 6346887-7 (Version None)
Quarter: 2009Q3

REPORT INFORMATION
  Report Type: 
  Country: None (occurrence: None)
  Receive Date: 20090908
  Receipt Date: 20090908
  Transmission Date: 20100115
  Serious: Yes (Other)
  Sender: FDA-Public Use
  Company Number: None

PATIENT
  Age: 63 Year
  Sex: Male
  Weight: 78.9259 kg

DRUGS (1)
  1. LEVEMIR [Suspect]
     Indication: CHEST PAIN
     Dosage: 42 UNITS SQ QD
     Route: 058
     Dates: start: 20090827, end: 20090831

REACTIONS (1)
  - CHEST PAIN [None]
